FAERS Safety Report 12771310 (Version 1)
Quarter: 2016Q3

REPORT INFORMATION
  Report Type: Spontaneous
  Country: US (occurrence: US)
  Receive Date: 20160922
  Receipt Date: 20160922
  Transmission Date: 20161109
  Serious: No
  Sender: FDA-Public Use
  Company Number: US-TARO-2015TAR01157

PATIENT
  Sex: Male

DRUGS (1)
  1. LORATADINE SYRUP (LORATADINE ORAL SOLUTION USP) 5MG/5ML [Suspect]
     Active Substance: LORATADINE
     Dosage: 1 TSP, 1X/DAY
     Route: 048

REACTIONS (5)
  - Sneezing [Recovered/Resolved]
  - Tic [Recovered/Resolved]
  - Cough [Recovering/Resolving]
  - Eczema [Recovering/Resolving]
  - Rhinorrhoea [Recovering/Resolving]
